FAERS Safety Report 8343359-5 (Version None)
Quarter: 2012Q2

REPORT INFORMATION
  Report Type: 
  Country: None (occurrence: None)
  Receive Date: 20120508
  Receipt Date: 20120427
  Transmission Date: 20120825
  Serious: Yes (Other)
  Sender: FDA-Public Use
  Company Number: US-JNJFOC-20120302643

PATIENT
  Sex: Female

DRUGS (2)
  1. STELARA [Suspect]
     Indication: PSORIASIS
     Route: 058
     Dates: start: 20110101
  2. STELARA [Suspect]
     Route: 058
     Dates: start: 20110101

REACTIONS (4)
  - PSORIASIS [None]
  - DEPRESSION [None]
  - DRUG DOSE OMISSION [None]
  - BODY HEIGHT DECREASED [None]
